FAERS Safety Report 19117576 (Version 2)
Quarter: 2021Q2

REPORT INFORMATION
  Report Type: Spontaneous
  Country: IT (occurrence: IT)
  Receive Date: 20210409
  Receipt Date: 20210514
  Transmission Date: 20210717
  Serious: Yes (Death, Hospitalization)
  Sender: FDA-Public Use
  Company Number: IT-ASTRAZENECA-2021A263681

PATIENT
  Age: 58 Year
  Sex: Female

DRUGS (1)
  1. TAGRISSO [Suspect]
     Active Substance: OSIMERTINIB
     Indication: LUNG ADENOCARCINOMA STAGE III
     Route: 048
     Dates: start: 20201012, end: 20210104

REACTIONS (1)
  - Thrombotic stroke [Fatal]

NARRATIVE: CASE EVENT DATE: 20201231
